FAERS Safety Report 22148757 (Version 3)
Quarter: 2024Q1

REPORT INFORMATION
  Report Type: Spontaneous
  Country: US (occurrence: US)
  Receive Date: 20230328
  Receipt Date: 20240219
  Transmission Date: 20240410
  Serious: No
  Sender: FDA-Public Use
  Company Number: US-CTI BIOPHARMA-2023US03402

PATIENT

DRUGS (11)
  1. VONJO [Suspect]
     Active Substance: PACRITINIB
     Indication: Myelodysplastic syndrome
     Dosage: 200 MG, BID
     Route: 048
     Dates: start: 20221227
  2. VONJO [Suspect]
     Active Substance: PACRITINIB
     Dosage: 200 MG, BID
     Route: 048
     Dates: start: 20221227
  3. VONJO [Suspect]
     Active Substance: PACRITINIB
     Dosage: 200 MG, BID
     Route: 048
     Dates: start: 20221228, end: 20231213
  4. ACETAMINOPHEN [Concomitant]
     Active Substance: ACETAMINOPHEN
     Indication: Product used for unknown indication
     Dosage: UNK
  5. ALBUTEROL SULFATE [Concomitant]
     Active Substance: ALBUTEROL SULFATE
  6. BENADRYL [Concomitant]
     Active Substance: DIPHENHYDRAMINE HYDROCHLORIDE
  7. CEFADROXIL [Concomitant]
     Active Substance: CEFADROXIL
  8. MELATONIN [Concomitant]
     Active Substance: MELATONIN
  9. VITAMINS NOS [Concomitant]
     Active Substance: VITAMINS
  10. TRAMADOL [Concomitant]
     Active Substance: TRAMADOL\TRAMADOL HYDROCHLORIDE
  11. METAMUCIL [Concomitant]
     Active Substance: PLANTAGO SEED

REACTIONS (12)
  - Abdominal pain upper [Unknown]
  - Splenomegaly [Unknown]
  - Bowel movement irregularity [Unknown]
  - Off label use [Unknown]
  - Constipation [Unknown]
  - Transfusion [Unknown]
  - Abdominal discomfort [Unknown]
  - Hepatic enzyme abnormal [Unknown]
  - Asthenia [Unknown]
  - Diarrhoea [Unknown]
  - Anaemia [Unknown]
  - Haemoglobin decreased [Unknown]
